FAERS Safety Report 5431031-0 (Version None)
Quarter: 2007Q3

REPORT INFORMATION
  Report Type: 
  Country: None (occurrence: None)
  Receive Date: 20070830
  Receipt Date: 20070821
  Transmission Date: 20080115
  Serious: Yes (Hospitalization)
  Sender: FDA-Public Use
  Company Number: FR-AMGEN-US234441

PATIENT
  Sex: Male
  Weight: 76 kg

DRUGS (6)
  1. ENBREL [Suspect]
     Indication: RHEUMATOID ARTHRITIS
     Route: 058
     Dates: start: 20070401
  2. NEXIUM [Concomitant]
     Route: 048
     Dates: start: 20060101
  3. TRAMADOL HCL [Concomitant]
     Route: 048
     Dates: start: 20060101
  4. VOLTAREN [Concomitant]
     Route: 048
     Dates: start: 20060101
  5. METHOTREXATE SODIUM [Concomitant]
     Dosage: 20 MG
     Route: 030
     Dates: start: 20010101
  6. PRIMPERAN INJ [Concomitant]
     Route: 048
     Dates: start: 20070402

REACTIONS (2)
  - CARDIOMYOPATHY [None]
  - MYOCARDIAL INFARCTION [None]
